FAERS Safety Report 8120903-4 (Version None)
Quarter: 2012Q1

REPORT INFORMATION
  Report Type: 
  Country: None (occurrence: None)
  Receive Date: 20120208
  Receipt Date: 20120126
  Transmission Date: 20120608
  Serious: Yes (Hospitalization, Other)
  Sender: FDA-Public Use
  Company Number: US-ELI_LILLY_AND_COMPANY-US201102005184

PATIENT
  Sex: Male

DRUGS (14)
  1. AMIODARONE [Concomitant]
     Dosage: 200 MG, QD
     Route: 065
  2. PREDNISONE [Concomitant]
     Dosage: 10 MG, UNKNOWN
     Route: 065
  3. OMEPRAZOLE [Concomitant]
     Indication: GASTRIC ULCER
     Dosage: 40 MG, QD
     Route: 065
  4. FORTEO [Suspect]
     Indication: OSTEOPOROSIS
     Dosage: 20 UG, QD
     Route: 065
     Dates: start: 20110209
  5. FUROSEMIDE [Concomitant]
     Dosage: 40 MG, QD
     Route: 065
  6. LISINOPRIL [Concomitant]
     Indication: CARDIAC DISORDER
     Dosage: 5 MG, UNKNOWN
     Route: 048
  7. CLONAZEPAM [Concomitant]
     Dosage: UNK UNK, BID
     Route: 065
  8. VITAMIN D [Concomitant]
     Dosage: UNK, UNKNOWN
     Route: 065
  9. LEXAPRO [Concomitant]
     Dosage: 20 MG, QD
     Route: 065
  10. FORTEO [Suspect]
     Dosage: 20 UG, QD
     Route: 065
     Dates: end: 20110701
  11. ADVAIR DISKUS 100/50 [Concomitant]
     Dosage: UNK, BID
     Route: 065
  12. DIGOXIN [Concomitant]
     Dosage: UNK UNK, QD
     Route: 048
  13. PHENYTOIN SODIUM [Concomitant]
     Dosage: UNK UNK, TID
     Route: 065
  14. SPIRIVA [Concomitant]
     Dosage: UNK, QD
     Route: 065

REACTIONS (10)
  - MOVEMENT DISORDER [None]
  - VIRAL INFECTION [None]
  - INTERVERTEBRAL DISC DISORDER [None]
  - BACK PAIN [None]
  - POSTURE ABNORMAL [None]
  - SPINAL COMPRESSION FRACTURE [None]
  - ONYCHOMADESIS [None]
  - MUSCULOSKELETAL PAIN [None]
  - ARTHRALGIA [None]
  - ARRHYTHMIA [None]
